FAERS Safety Report 22686281 (Version 3)
Quarter: 2023Q4

REPORT INFORMATION
  Report Type: Report from Study
  Country: US (occurrence: US)
  Receive Date: 20230710
  Receipt Date: 20231005
  Transmission Date: 20240110
  Serious: Yes (Other)
  Sender: FDA-Public Use
  Company Number: US-ABBVIE-5281737

PATIENT
  Sex: Male

DRUGS (2)
  1. HUMIRA [Suspect]
     Active Substance: ADALIMUMAB
     Indication: Colitis ulcerative
     Dosage: FORM STRENGTH 40 MILLIGRAM
     Route: 058
     Dates: start: 20171101
  2. CARVEDILOL [Concomitant]
     Active Substance: CARVEDILOL
     Indication: Product used for unknown indication

REACTIONS (12)
  - Cardiac pacemaker insertion [Recovering/Resolving]
  - Scoliosis [Unknown]
  - Peripheral swelling [Recovering/Resolving]
  - Chest pain [Not Recovered/Not Resolved]
  - Dementia [Not Recovered/Not Resolved]
  - Skin cancer [Recovered/Resolved]
  - Anal incontinence [Recovering/Resolving]
  - Bone disorder [Recovering/Resolving]
  - Dizziness [Unknown]
  - Back pain [Not Recovered/Not Resolved]
  - Blood pressure inadequately controlled [Unknown]
  - Aggression [Unknown]

NARRATIVE: CASE EVENT DATE: 20230101
